FAERS Safety Report 16895264 (Version 1)
Quarter: 2019Q4

REPORT INFORMATION
  Report Type: Spontaneous
  Country: US (occurrence: US)
  Receive Date: 20191007
  Receipt Date: 20191007
  Transmission Date: 20200122
  Serious: Yes (Other)
  Sender: FDA-Public Use
  Company Number: None

PATIENT
  Age: 50 Year
  Sex: Female
  Weight: 95.85 kg

DRUGS (7)
  1. SUMATRIPTAN 100 MG TABLET PRN [Concomitant]
     Dates: start: 20130701
  2. TIZANIDINE. [Concomitant]
     Active Substance: TIZANIDINE
  3. ESCITALOPRAM [Concomitant]
     Active Substance: ESCITALOPRAM OXALATE
  4. ONABOTULINUMTOXINA Q 3 MONTHS FOR MIGRAINE [Concomitant]
     Dates: start: 20131001
  5. ERENUMAB [Suspect]
     Active Substance: ERENUMAB
     Indication: MIGRAINE
     Dosage: ?          OTHER FREQUENCY:MONTHLY;?
     Route: 058
     Dates: start: 20180717
  6. ALBUTEROL. [Concomitant]
     Active Substance: ALBUTEROL
  7. MODAFINIL. [Concomitant]
     Active Substance: MODAFINIL

REACTIONS (1)
  - Clinically isolated syndrome [None]

NARRATIVE: CASE EVENT DATE: 20190402
